FAERS Safety Report 25940651 (Version 1)
Quarter: 2025Q4

REPORT INFORMATION
  Report Type: Spontaneous
  Country: US (occurrence: None)
  Receive Date: 20251017
  Receipt Date: 20251017
  Transmission Date: 20260118
  Serious: Yes (unspecified)
  Sender: FDA-CTU
  Company Number: None

PATIENT
  Age: 74 Year
  Sex: Male
  Weight: 88.5 kg

DRUGS (2)
  1. ACETAMINOPHEN [Suspect]
     Active Substance: ACETAMINOPHEN
     Indication: Procedural pain
     Dosage: 1000 MG/MG ONCE INTRAVENOUS BOLUS
     Route: 040
     Dates: start: 20251016, end: 20251016
  2. NEXTERONE [Suspect]
     Active Substance: AMIODARONE HYDROCHLORIDE
     Indication: Arrhythmia prophylaxis
     Dosage: 360 MG CONTINUOUS INTRAVENOUS DRIP
     Route: 041
     Dates: start: 20251016, end: 20251017

REACTIONS (7)
  - Urticaria [None]
  - Hypotension [None]
  - Oxygen saturation decreased [None]
  - Swollen tongue [None]
  - Swelling face [None]
  - Eye swelling [None]
  - Lip swelling [None]

NARRATIVE: CASE EVENT DATE: 20251016
